FAERS Safety Report 14206750 (Version 2)
Quarter: 2025Q3

REPORT INFORMATION
  Report Type: Spontaneous
  Country: GB (occurrence: GB)
  Receive Date: 20171121
  Receipt Date: 20250825
  Transmission Date: 20251021
  Serious: Yes (Other)
  Sender: ACCORD
  Company Number: GB-ACCORD-061120

PATIENT
  Age: 49 Year
  Sex: Female

DRUGS (3)
  1. MYCOPHENOLATE MOFETIL [Suspect]
     Active Substance: MYCOPHENOLATE MOFETIL
     Indication: Vanishing bile duct syndrome
     Route: 048
  2. PREDNISOLONE [Suspect]
     Active Substance: PREDNISOLONE
     Indication: Autoimmune hepatitis
     Route: 048
  3. URSODIOL [Concomitant]
     Active Substance: URSODIOL
     Indication: Vanishing bile duct syndrome

REACTIONS (4)
  - Type 1 diabetes mellitus [Unknown]
  - Fracture [Unknown]
  - Neutropenia [Unknown]
  - Drug ineffective for unapproved indication [Unknown]
